FAERS Safety Report 5881606-X (Version None)
Quarter: 2008Q3

REPORT INFORMATION
  Report Type: 
  Country: None (occurrence: None)
  Receive Date: 20080912
  Receipt Date: 20080707
  Transmission Date: 20090109
  Serious: No
  Sender: FDA-Public Use
  Company Number: US-ABBOTT-08P-163-0460912-00

PATIENT
  Sex: Female
  Weight: 79.45 kg

DRUGS (10)
  1. HUMIRA [Suspect]
     Indication: RHEUMATOID ARTHRITIS
     Dates: start: 20080523
  2. ACETYLSALICYLIC ACID SRT [Concomitant]
     Indication: CARDIAC OPERATION
  3. KAPSOVIT [Concomitant]
     Indication: DRUG USE FOR UNKNOWN INDICATION
  4. ESCITALOPRAM OXALATE [Concomitant]
     Indication: BLOOD PRESSURE
  5. PREGABALIN [Concomitant]
     Indication: FIBROMYALGIA
  6. ZOLPIDEM TARTRATE [Concomitant]
     Indication: INSOMNIA
  7. NICOTINAM. W/PYRIDOXI. HCL/RIBOFL./THIAM. HCL [Concomitant]
     Indication: DRUG USE FOR UNKNOWN INDICATION
  8. UBIDECARENONE [Concomitant]
     Indication: DRUG USE FOR UNKNOWN INDICATION
  9. CENTRUM SILVER [Concomitant]
     Indication: DRUG USE FOR UNKNOWN INDICATION
  10. CALCIUM CARBONATE [Concomitant]
     Indication: DRUG USE FOR UNKNOWN INDICATION

REACTIONS (3)
  - CONTUSION [None]
  - RASH MACULAR [None]
  - WEIGHT INCREASED [None]
